FAERS Safety Report 13953115 (Version 2)
Quarter: 2017Q3

REPORT INFORMATION
  Report Type: Spontaneous
  Country: US (occurrence: US)
  Receive Date: 20170911
  Receipt Date: 20170929
  Transmission Date: 20171128
  Serious: Yes (Hospitalization, Other)
  Sender: FDA-Public Use
  Company Number: US-AUROBINDO-AUR-APL-2017-39918

PATIENT
  Age: 63 Year
  Sex: Female

DRUGS (2)
  1. DEXTROMETHORPHAN W/PROMETHAZINE [Interacting]
     Active Substance: DEXTROMETHORPHAN\PROMETHAZINE
     Indication: UPPER RESPIRATORY TRACT INFECTION
     Route: 065
  2. ESCITALOPRAM [Suspect]
     Active Substance: ESCITALOPRAM OXALATE
     Indication: DEPRESSION
     Route: 065

REACTIONS (8)
  - Sleep talking [Recovered/Resolved]
  - Drug interaction [Recovered/Resolved]
  - Cognitive disorder [Recovered/Resolved]
  - Serotonin syndrome [Recovered/Resolved]
  - Electrocardiogram QT prolonged [Recovered/Resolved]
  - Decreased appetite [Recovered/Resolved]
  - Poor quality sleep [Recovered/Resolved]
  - Hallucinations, mixed [Recovered/Resolved]
